FAERS Safety Report 12796939 (Version 1)
Quarter: 2016Q3

REPORT INFORMATION
  Report Type: Spontaneous
  Country: US (occurrence: US)
  Receive Date: 20160930
  Receipt Date: 20160930
  Transmission Date: 20161109
  Serious: No
  Sender: FDA-Public Use
  Company Number: US-009507513-1609USA012646

PATIENT

DRUGS (1)
  1. INVANZ [Suspect]
     Active Substance: ERTAPENEM SODIUM
     Dosage: UNK
     Route: 030

REACTIONS (3)
  - Medication error [Unknown]
  - Product preparation error [Unknown]
  - No adverse event [Unknown]
